FAERS Safety Report 9691950 (Version 1)
Quarter: 2013Q4

REPORT INFORMATION
  Report Type: Report from Study
  Country: GB (occurrence: GB)
  Receive Date: 20131118
  Receipt Date: 20131118
  Transmission Date: 20140711
  Serious: Yes (Other)
  Sender: FDA-Public Use
  Company Number: GB-AMGEN-GBRCT2013080679

PATIENT
  Age: 50 Year
  Sex: Male
  Weight: 83 kg

DRUGS (5)
  1. ETANERCEPT [Suspect]
     Indication: PRODUCT USED FOR UNKNOWN INDICATION
     Dosage: UNK UNK, QWK
     Route: 065
  2. DOVOBET [Concomitant]
     Dosage: UNK
     Dates: start: 20090912
  3. DOVONEX [Concomitant]
     Dosage: UNK
     Dates: start: 20090912
  4. FUMARIC ACID [Concomitant]
     Dosage: UNK
     Dates: start: 20100104
  5. PARACETAMOL [Concomitant]
     Dosage: UNK
     Dates: start: 20120803

REACTIONS (1)
  - Basal cell carcinoma [Recovered/Resolved]
